FAERS Safety Report 15396524 (Version 1)
Quarter: 2018Q3

REPORT INFORMATION
  Report Type: Spontaneous
  Country: US (occurrence: US)
  Receive Date: 20180913
  Receipt Date: 20180913
  Transmission Date: 20181010
  Serious: Yes (Hospitalization)
  Sender: FDA-Public Use
  Company Number: None

PATIENT
  Sex: Female

DRUGS (6)
  1. SILDENAFIL. [Suspect]
     Active Substance: SILDENAFIL
     Indication: PRODUCT USED FOR UNKNOWN INDICATION
     Dosage: ?          OTHER FREQUENCY:Q 8 HOURS;?
     Route: 048
     Dates: start: 20180816
  2. KLOR?CON, LANTUS [Concomitant]
  3. ASPIRIN, CARVEDILOL [Concomitant]
  4. FUROSEMIDE, JANUVIA [Concomitant]
  5. LISINOP/HCTZ, NOVOLOG [Concomitant]
  6. SPIRONOLACT [Concomitant]
     Active Substance: SPIRONOLACTONE

REACTIONS (1)
  - Seizure [None]
